FAERS Safety Report 26028490 (Version 2)
Quarter: 2025Q4

REPORT INFORMATION
  Report Type: Spontaneous
  Country: US (occurrence: US)
  Receive Date: 20251111
  Receipt Date: 20251119
  Transmission Date: 20260118
  Serious: Yes (Other)
  Sender: TEVA
  Company Number: US-TEVA-VS-3389564

PATIENT
  Age: 46 Year
  Sex: Female

DRUGS (2)
  1. HYDROXYCHLOROQUINE [Suspect]
     Active Substance: HYDROXYCHLOROQUINE
     Indication: Systemic lupus erythematosus
     Dosage: 2.56 MG/KG BY TOTAL BODY WEIGHT, INTERMITTENTLY OVER FIVE YEARS, ACTIVELY TAKEN THE MEDICATION FO...
     Route: 065
     Dates: start: 2016, end: 2021
  2. PENTOSAN POLYSULFATE SODIUM [Suspect]
     Active Substance: PENTOSAN POLYSULFATE SODIUM
     Indication: Cystitis interstitial
     Dosage: THREE TIMES A DAY
     Route: 048
     Dates: start: 2010, end: 2019

REACTIONS (2)
  - Maculopathy [Recovering/Resolving]
  - Cystoid macular oedema [Recovering/Resolving]
